FAERS Safety Report 16105199 (Version 1)
Quarter: 2019Q1

REPORT INFORMATION
  Report Type: Spontaneous
  Country: US (occurrence: US)
  Receive Date: 20190322
  Receipt Date: 20190322
  Transmission Date: 20190418
  Serious: Yes (Hospitalization)
  Sender: FDA-Public Use
  Company Number: US-JNJFOC-20190329666

PATIENT
  Age: 77 Year
  Sex: Male

DRUGS (2)
  1. PEMBROLIZUMAB. [Suspect]
     Active Substance: PEMBROLIZUMAB
     Indication: METASTATIC MALIGNANT MELANOMA
     Dosage: 200 MG, Q 3 WEEKS
     Route: 042
     Dates: start: 20190130, end: 20190222
  2. IMBRUVICA [Suspect]
     Active Substance: IBRUTINIB
     Indication: METASTATIC MALIGNANT MELANOMA
     Dosage: 420 MG, QD
     Route: 048
     Dates: start: 20190123, end: 20190313

REACTIONS (5)
  - Off label use [Unknown]
  - Alanine aminotransferase abnormal [Unknown]
  - Bilirubin conjugated increased [Unknown]
  - Aspartate aminotransferase increased [Unknown]
  - Product use in unapproved indication [Unknown]

NARRATIVE: CASE EVENT DATE: 20190123
